FAERS Safety Report 9652855 (Version 1)
Quarter: 2013Q4

REPORT INFORMATION
  Report Type: Spontaneous
  Country: IT (occurrence: IT)
  Receive Date: 20131029
  Receipt Date: 20131029
  Transmission Date: 20140711
  Serious: Yes (Disabling)
  Sender: FDA-Public Use
  Company Number: IT-ALLERGAN-1316607US

PATIENT
  Age: 76 Year
  Sex: Female

DRUGS (3)
  1. LUMIGAN [Suspect]
     Indication: GLAUCOMA
     Dosage: ONE DROP PER DAY
     Route: 061
     Dates: end: 20130301
  2. TIMOLOL [Concomitant]
     Route: 061
  3. CARBONIC ANHYDRASE INHIBITOR [Concomitant]
     Route: 061

REACTIONS (1)
  - Deafness bilateral [Recovered/Resolved]
